FAERS Safety Report 9453013 (Version 1)
Quarter: 2013Q3

REPORT INFORMATION
  Report Type: Report from Study
  Country: GB (occurrence: GB)
  Receive Date: 20130812
  Receipt Date: 20130812
  Transmission Date: 20140515
  Serious: Yes (Hospitalization, Other)
  Sender: FDA-Public Use
  Company Number: GB-ROCHE-1258827

PATIENT
  Sex: 0
  Weight: 166 kg

DRUGS (19)
  1. BEVACIZUMAB [Suspect]
     Indication: BRAIN NEOPLASM MALIGNANT
     Dosage: DATE OF LAST DOSE OF BEVACIZUMAB GIVEN ON 11/JUL/2013, 165 MG
     Route: 065
     Dates: start: 20130711
  2. TEMOZOLOMIDE [Suspect]
     Indication: BRAIN NEOPLASM MALIGNANT
     Dosage: DATE OF AST DOSE OF TEMOZOLOMIDE GIVEN ON 15/JUL/2013 145 MG
     Route: 065
     Dates: start: 20130711
  3. DEXAMETHASON [Concomitant]
  4. SODIUM CHLORIDE [Concomitant]
  5. ATENOLOL [Concomitant]
  6. URSODEOXYCHOLIC ACID [Concomitant]
  7. DOMPERIDONE [Concomitant]
  8. COTRIMAZOL [Concomitant]
  9. LANSOPRAZOLE [Concomitant]
  10. ONDANSETRON [Concomitant]
  11. TAZOBACTAM [Concomitant]
  12. PIPRACIL [Concomitant]
  13. GENTAMICIN [Concomitant]
  14. METRONIDAZOL [Concomitant]
  15. PARACETAMOL [Concomitant]
  16. BUSULPHAN [Concomitant]
  17. ORAMORPH [Concomitant]
     Route: 048
  18. LORAZEPAM [Concomitant]
     Route: 065
     Dates: end: 20130723
  19. MOVICOLON [Concomitant]

REACTIONS (3)
  - Hyponatraemia [Recovered/Resolved with Sequelae]
  - Convulsion [Recovered/Resolved with Sequelae]
  - Convulsion [Recovered/Resolved]
